FAERS Safety Report 5170249-1 (Version None)
Quarter: 2006Q4

REPORT INFORMATION
  Report Type: 
  Country: None (occurrence: None)
  Receive Date: 20061204
  Receipt Date: 20061120
  Transmission Date: 20070319
  Serious: Yes (Hospitalization)
  Sender: FDA-Public Use
  Company Number: 2006S1000270

PATIENT
  Age: 74 Year
  Sex: Female

DRUGS (2)
  1. SORIATANE [Suspect]
     Indication: PITYRIASIS RUBRA PILARIS
     Dosage: 20 MG;QD;PO; 30 MG;QD;PO
     Route: 048
     Dates: start: 20050722, end: 20050728
  2. SORIATANE [Suspect]
     Indication: PITYRIASIS RUBRA PILARIS
     Dosage: 20 MG;QD;PO; 30 MG;QD;PO
     Route: 048
     Dates: start: 20050728, end: 20050804

REACTIONS (2)
  - CEREBRAL THROMBOSIS [None]
  - JUGULAR VEIN THROMBOSIS [None]
